FAERS Safety Report 12634536 (Version 1)
Quarter: 2016Q3

REPORT INFORMATION
  Report Type: Spontaneous
  Country: US (occurrence: None)
  Receive Date: 20160808
  Receipt Date: 20160808
  Transmission Date: 20161109
  Serious: Yes (Hospitalization)
  Sender: FDA-Public Use
  Company Number: None

PATIENT
  Age: 32 Month
  Sex: Female
  Weight: 11.6 kg

DRUGS (9)
  1. FERROUS SULFATE. [Concomitant]
     Active Substance: FERROUS SULFATE
  2. KEPPRA [Concomitant]
     Active Substance: LEVETIRACETAM
  3. LORATADINE. [Concomitant]
     Active Substance: LORATADINE
  4. BOTOX [Suspect]
     Active Substance: ONABOTULINUMTOXINA
     Indication: MUSCLE TONE DISORDER
     Route: 030
     Dates: start: 20160725, end: 20160725
  5. IBUPROFEN. [Concomitant]
     Active Substance: IBUPROFEN
  6. LEVOCARNITINE. [Concomitant]
     Active Substance: LEVOCARNITINE
  7. POLYETHYLENE GLYCOL [Concomitant]
     Active Substance: POLYETHYLENE GLYCOLS
  8. ACETAMINOPHEN. [Concomitant]
     Active Substance: ACETAMINOPHEN
  9. THIAMINE. [Concomitant]
     Active Substance: THIAMINE

REACTIONS (2)
  - Hypotonia [None]
  - Muscular weakness [None]

NARRATIVE: CASE EVENT DATE: 20160801
